FAERS Safety Report 9787660 (Version 2)
Quarter: 2013Q4

REPORT INFORMATION
  Report Type: Spontaneous
  Country: US (occurrence: US)
  Receive Date: 20131230
  Receipt Date: 20131230
  Transmission Date: 20140711
  Serious: Yes (Other)
  Sender: FDA-Public Use
  Company Number: US-JNJFOC-20131212031

PATIENT
  Age: 58 Year
  Sex: Male
  Weight: 73.94 kg

DRUGS (3)
  1. ITRACONAZOLE [Suspect]
     Indication: FUNGAL INFECTION
     Route: 048
     Dates: start: 20130209
  2. OXYCODONE [Concomitant]
     Indication: ARTHRITIS
     Route: 048
     Dates: start: 2013
  3. OXYCODONE [Concomitant]
     Indication: ARTHRITIS
     Route: 048

REACTIONS (8)
  - Dyspnoea [Not Recovered/Not Resolved]
  - White blood cell count decreased [Recovered/Resolved]
  - Secretion discharge [Not Recovered/Not Resolved]
  - Drug ineffective [Not Recovered/Not Resolved]
  - Food allergy [Not Recovered/Not Resolved]
  - Nasopharyngitis [Not Recovered/Not Resolved]
  - Oropharyngeal pain [Not Recovered/Not Resolved]
  - Cough [Not Recovered/Not Resolved]
